FAERS Safety Report 22778641 (Version 2)
Quarter: 2023Q4

REPORT INFORMATION
  Report Type: Spontaneous
  Country: US (occurrence: US)
  Receive Date: 20230802
  Receipt Date: 20231128
  Transmission Date: 20240110
  Serious: Yes (Other)
  Sender: FDA-Public Use
  Company Number: US-PFIZER INC-PV202300132419

PATIENT
  Age: 77 Year
  Sex: Female
  Weight: 82.917 kg

DRUGS (1)
  1. IBRANCE [Suspect]
     Active Substance: PALBOCICLIB
     Indication: Bone cancer
     Dosage: 100 MG, CYCLIC [TAKE 1 TABLET EVERY DAY FOR 21 CONSECUTIVE DAYS, FOLLOWED BY 7 DAYS OFF]
     Route: 048

REACTIONS (1)
  - Fall [Unknown]
